FAERS Safety Report 8398735-1 (Version None)
Quarter: 2012Q2

REPORT INFORMATION
  Report Type: 
  Country: None (occurrence: None)
  Receive Date: 20120531
  Receipt Date: 20120524
  Transmission Date: 20120825
  Serious: Yes (Hospitalization, Other)
  Sender: FDA-Public Use
  Company Number: PHHY2012AU044427

PATIENT
  Sex: Female

DRUGS (1)
  1. CLOZARIL [Suspect]
     Dosage: 350 MG
     Dates: start: 20050609

REACTIONS (4)
  - URINARY TRACT INFECTION [None]
  - HYPOTENSION [None]
  - GENERAL PHYSICAL CONDITION ABNORMAL [None]
  - OXYGEN SATURATION DECREASED [None]
